APPROVED DRUG PRODUCT: EPOPROSTENOL SODIUM
Active Ingredient: EPOPROSTENOL SODIUM
Strength: EQ 1.5MG BASE/VIAL
Dosage Form/Route: INJECTABLE;INJECTION
Application: A078396 | Product #002
Applicant: MEITHEAL PHARMACEUTICALS INC
Approved: Apr 23, 2008 | RLD: No | RS: Yes | Type: RX